FAERS Safety Report 5952561-9 (Version None)
Quarter: 2008Q4

REPORT INFORMATION
  Report Type: 
  Country: None (occurrence: None)
  Receive Date: 20081113
  Receipt Date: 20081104
  Transmission Date: 20090506
  Serious: Yes (Hospitalization)
  Sender: FDA-Public Use
  Company Number: BE-ABBOTT-05P-013-0290892-00

PATIENT
  Sex: Female
  Weight: 78 kg

DRUGS (6)
  1. SIBUTRAMINE [Suspect]
     Indication: OBESITY
     Route: 048
     Dates: start: 20030916, end: 20041109
  2. HYOSCINE [Concomitant]
     Indication: PAIN
     Dates: start: 20041201
  3. METOPROLOL TARTRATE [Concomitant]
     Indication: MYOCARDIAL ISCHAEMIA
     Dates: start: 19960101
  4. OMEPRAZOLE [Concomitant]
     Indication: GASTRIC ULCER
     Dates: start: 20020101
  5. ATORVASTATIN CALCIUM [Concomitant]
     Indication: HYPERCHOLESTEROLAEMIA
     Dates: start: 19960101
  6. CLOPIDOGREL [Concomitant]
     Indication: THROMBOSIS PROPHYLAXIS
     Dates: start: 20041101

REACTIONS (2)
  - HYDRONEPHROSIS [None]
  - RETROPERITONEAL FIBROSIS [None]
